FAERS Safety Report 4631468-3 (Version None)
Quarter: 2005Q3

REPORT INFORMATION
  Report Type: 
  Country: None (occurrence: None)
  Receive Date: 20050407
  Receipt Date: 20050401
  Transmission Date: 20060218
  Serious: Yes (Hospitalization)
  Sender: FDA-Public Use
  Company Number: 2005P1000015

PATIENT
  Age: 34 Year
  Sex: Male

DRUGS (1)
  1. BUSULFEX [Suspect]
     Dosage: 220 MG
     Route: 042
     Dates: start: 20021114, end: 20021117

REACTIONS (4)
  - COMPLICATIONS OF BONE MARROW TRANSPLANT [None]
  - HEPATOMEGALY [None]
  - STOMATITIS [None]
  - VENOOCCLUSIVE LIVER DISEASE [None]
